FAERS Safety Report 16996030 (Version 1)
Quarter: 2019Q4

REPORT INFORMATION
  Report Type: Spontaneous
  Country: US (occurrence: US)
  Receive Date: 20191105
  Receipt Date: 20191105
  Transmission Date: 20200122
  Serious: No
  Sender: FDA-Public Use
  Company Number: US-PFIZER INC-2019476657

PATIENT
  Weight: 90.7 kg

DRUGS (1)
  1. JUNIOR STRENGTH ADVIL [Suspect]
     Active Substance: IBUPROFEN
     Dosage: 100 MG, UNK

REACTIONS (2)
  - Ulcer [Unknown]
  - Headache [Unknown]
